FAERS Safety Report 8401467 (Version 2)
Quarter: 2012Q4

REPORT INFORMATION
  Report Type: 
  Country: US (occurrence: US)
  Receive Date: 20120210
  Receipt Date: 20121017
  Transmission Date: 20130627
  Serious: Yes (Hospitalization, Other)
  Sender: FDA-Public Use
  Company Number: PHEH2012US003009

PATIENT
  Age: 30 Year
  Sex: Female

DRUGS (5)
  1. GILENYA [Suspect]
     Indication: MULTIPLE SCLEROSIS
     Dosage: 0.5 mg, daily
     Route: 048
     Dates: start: 20110830, end: 20120201
  2. GILENYA [Suspect]
     Dosage: 0.5 mg, daily
     Route: 048
     Dates: start: 20120720
  3. PROZAC [Concomitant]
  4. LAMICTAL [Concomitant]
  5. ATIVAN [Concomitant]

REACTIONS (5)
  - Suicide attempt [Not Recovered/Not Resolved]
  - Hypoaesthesia [Not Recovered/Not Resolved]
  - Headache [Not Recovered/Not Resolved]
  - Back pain [Not Recovered/Not Resolved]
  - Depression [Not Recovered/Not Resolved]
